FAERS Safety Report 7240316-7 (Version None)
Quarter: 2011Q1

REPORT INFORMATION
  Report Type: 
  Country: None (occurrence: None)
  Receive Date: 20110113
  Receipt Date: 20101228
  Transmission Date: 20110831
  Serious: Yes (Other)
  Sender: FDA-Public Use
  Company Number: ES-DEXPHARM-20102160

PATIENT
  Age: 67 Year
  Sex: Male

DRUGS (5)
  1. ASPIRIN [Concomitant]
  2. DILTIACEM [Concomitant]
  3. LOSARTAN POTASSIUM [Concomitant]
  4. OMEPRAZOLE [Suspect]
     Indication: GASTROINTESTINAL DISORDER
     Dosage: 20 MG MILLIGRAM(S) SEP. DOSAGES / INTERVAL: 1 IN 1 DAY
     Dates: start: 20060101
  5. FLUTICASONE/SALMETEROL INHALERS [Concomitant]

REACTIONS (4)
  - VITAMIN D DECREASED [None]
  - HYPOCALCAEMIA [None]
  - HYPOMAGNESAEMIA [None]
  - TETANY [None]
